FAERS Safety Report 7705792-1 (Version None)
Quarter: 2011Q3

REPORT INFORMATION
  Report Type: 
  Country: None (occurrence: None)
  Receive Date: 20110824
  Receipt Date: 20110824
  Transmission Date: 20111222
  Serious: Yes (Life-Threatening, Disabling, Other)
  Sender: FDA-Public Use
  Company Number: None

PATIENT
  Age: 42 Year
  Sex: Female
  Weight: 81.646 kg

DRUGS (1)
  1. VENLAFAXINE HCL EXTENDED-RELEASE [Suspect]
     Dosage: 1 CAPSULE
     Route: 048
     Dates: start: 20110701, end: 20111031

REACTIONS (4)
  - GENERAL PHYSICAL HEALTH DETERIORATION [None]
  - SLEEP DISORDER [None]
  - HEADACHE [None]
  - ANXIETY [None]
